FAERS Safety Report 13446685 (Version 1)
Quarter: 2017Q2

REPORT INFORMATION
  Report Type: Spontaneous
  Country: SE (occurrence: SE)
  Receive Date: 20170417
  Receipt Date: 20170417
  Transmission Date: 20170830
  Serious: Yes (Hospitalization)
  Sender: FDA-Public Use
  Company Number: SE-TEVA-757087ACC

PATIENT
  Age: 84 Year
  Sex: Male

DRUGS (18)
  1. GLYCERYL TRINITRATE [Concomitant]
     Active Substance: NITROGLYCERIN
  2. IMDUR [Concomitant]
     Active Substance: ISOSORBIDE MONONITRATE
  3. LANTUS [Concomitant]
     Active Substance: INSULIN GLARGINE
  4. SYMBICORT [Concomitant]
     Active Substance: BUDESONIDE\FORMOTEROL FUMARATE DIHYDRATE
  5. SIMVASTATIN ARROW [Concomitant]
     Active Substance: SIMVASTATIN
  6. DUROFERON [Concomitant]
     Active Substance: FERROUS SULFATE
  7. LEVAXIN [Concomitant]
     Active Substance: LEVOTHYROXINE SODIUM
  8. FINASTERIDE ACTAVIS [Concomitant]
     Active Substance: FINASTERIDE
  9. VENTOLINE [Concomitant]
     Active Substance: ALBUTEROL
  10. BISOPROLOL TEVA [Suspect]
     Active Substance: BISOPROLOL
     Indication: ATRIAL FIBRILLATION
     Route: 048
     Dates: start: 20110705, end: 20150725
  11. ENALAPRIL ACTAVIS [Suspect]
     Active Substance: ENALAPRIL
  12. FRAGMIN [Concomitant]
     Active Substance: DALTEPARIN SODIUM
  13. DIGOXIN BIOPHAUSIA [Suspect]
     Active Substance: DIGOXIN
     Indication: ATRIAL FIBRILLATION
     Route: 048
     Dates: start: 20150527, end: 20150725
  14. FOLACIN [Concomitant]
     Active Substance: FOLIC ACID
  15. HUMALOG [Concomitant]
     Active Substance: INSULIN LISPRO
  16. FURIX [Concomitant]
     Active Substance: FUROSEMIDE
  17. OMEPRAZOLE ACTAVIS [Concomitant]
     Active Substance: OMEPRAZOLE
  18. BEHEPAN [Concomitant]
     Active Substance: HYDROXOCOBALAMIN

REACTIONS (3)
  - Blood creatinine increased [Recovered/Resolved]
  - Blood glucose abnormal [Unknown]
  - Bradycardia [Recovered/Resolved]

NARRATIVE: CASE EVENT DATE: 20150725
